FAERS Safety Report 10759537 (Version 1)
Quarter: 2015Q1

REPORT INFORMATION
  Report Type: Spontaneous
  Country: US (occurrence: US)
  Receive Date: 20150203
  Receipt Date: 20150203
  Transmission Date: 20150721
  Serious: No
  Sender: FDA-Public Use
  Company Number: US-GILEAD-2015-0134450

PATIENT
  Sex: Male

DRUGS (1)
  1. HARVONI [Suspect]
     Active Substance: LEDIPASVIR\SOFOSBUVIR
     Indication: PRODUCT USED FOR UNKNOWN INDICATION
     Dosage: 1 DF, UNK
     Route: 065
     Dates: start: 201412

REACTIONS (6)
  - Pyrexia [Unknown]
  - Influenza [Unknown]
  - Chills [Unknown]
  - Nasopharyngitis [Unknown]
  - Headache [Unknown]
  - Upper respiratory tract congestion [Unknown]
